FAERS Safety Report 10050069 (Version 1)
Quarter: 2014Q1

REPORT INFORMATION
  Report Type: Spontaneous
  Country: US (occurrence: None)
  Receive Date: 20140331
  Receipt Date: 20140331
  Transmission Date: 20141002
  Serious: Yes (Disabling)
  Sender: FDA-Public Use
  Company Number: None

PATIENT
  Age: 61 Year
  Sex: Female

DRUGS (1)
  1. LEVAQUIN [Suspect]
     Indication: BRONCHITIS
     Dosage: 1 TAB, TWICE DAILY, TAKEN BY MOUTH
     Route: 048
     Dates: start: 20140102, end: 20140106

REACTIONS (7)
  - Arthralgia [None]
  - Tendon disorder [None]
  - Muscular weakness [None]
  - Tendonitis [None]
  - Asthenia [None]
  - Pain [None]
  - Gait disturbance [None]
